FAERS Safety Report 21739334 (Version 1)
Quarter: 2022Q4

REPORT INFORMATION
  Report Type: Spontaneous
  Country: US (occurrence: US)
  Receive Date: 20221216
  Receipt Date: 20221216
  Transmission Date: 20230113
  Serious: Yes (Other)
  Sender: FDA-Public Use
  Company Number: US-drreddys-SPO/USA/22/0158092

PATIENT
  Age: 15 Year
  Sex: Female

DRUGS (1)
  1. HEPARIN SODIUM [Suspect]
     Active Substance: HEPARIN SODIUM
     Indication: Haemodialysis

REACTIONS (1)
  - Heparin-induced thrombocytopenia [Recovered/Resolved]
